FAERS Safety Report 25463555 (Version 1)
Quarter: 2025Q2

REPORT INFORMATION
  Report Type: Spontaneous
  Country: CZ (occurrence: CZ)
  Receive Date: 20250620
  Receipt Date: 20250620
  Transmission Date: 20250716
  Serious: Yes (Disabling, Other)
  Sender: ALEXION PHARMACEUTICALS
  Company Number: None

PATIENT
  Age: 53 Year
  Weight: 55 kg

DRUGS (4)
  1. LYNPARZA [Suspect]
     Active Substance: OLAPARIB
     Indication: Ovarian cancer recurrent
     Dosage: 300 MILLIGRAM, QD
  2. LYNPARZA [Suspect]
     Active Substance: OLAPARIB
     Dosage: 600 MILLIGRAM, QD
  3. PACLITAXEL [Concomitant]
     Active Substance: PACLITAXEL
     Indication: Ovarian cancer
     Route: 065
  4. CARBOPLATIN [Concomitant]
     Active Substance: CARBOPLATIN
     Indication: Ovarian cancer
     Route: 065

REACTIONS (4)
  - Nausea [Unknown]
  - Asthenia [Unknown]
  - Neuropathy peripheral [Not Recovered/Not Resolved]
  - Dyspepsia [Unknown]
